FAERS Safety Report 7864842-2 (Version None)
Quarter: 2011Q4

REPORT INFORMATION
  Report Type: 
  Country: None (occurrence: None)
  Receive Date: 20111028
  Receipt Date: 20100902
  Transmission Date: 20120403
  Serious: No
  Sender: FDA-Public Use
  Company Number: US-GLAXOSMITHKLINE-A0879246A

PATIENT
  Age: 71 Year
  Sex: Female

DRUGS (13)
  1. ATROVENT [Concomitant]
  2. ADVAIR DISKUS 100/50 [Suspect]
     Indication: CHRONIC OBSTRUCTIVE PULMONARY DISEASE
     Dosage: 1PUFF TWICE PER DAY
     Route: 055
     Dates: start: 20100820, end: 20100826
  3. PROTONIX [Concomitant]
  4. VITAMIN D [Concomitant]
  5. RANEXA [Concomitant]
  6. CRESTOR [Concomitant]
  7. TENORMIN [Concomitant]
  8. ALBUTEROL [Concomitant]
  9. PLAVIX [Concomitant]
  10. ASPIRIN [Concomitant]
  11. MULTI-VITAMIN [Concomitant]
  12. TARCEVA [Concomitant]
  13. ZOFRAN [Concomitant]

REACTIONS (1)
  - ABDOMINAL PAIN UPPER [None]
